FAERS Safety Report 20056883 (Version 1)
Quarter: 2021Q4

REPORT INFORMATION
  Report Type: Spontaneous
  Country: US (occurrence: None)
  Receive Date: 20211111
  Receipt Date: 20211111
  Transmission Date: 20220303
  Serious: Yes (Other)
  Sender: FDA-Public Use
  Company Number: 2021A800782

PATIENT
  Age: 61 Year
  Sex: Female
  Weight: 56.7 kg

DRUGS (1)
  1. BUDESONIDE\FORMOTEROL\GLYCOPYRRONIUM [Suspect]
     Active Substance: BUDESONIDE\FORMOTEROL\GLYCOPYRRONIUM
     Indication: Chronic obstructive pulmonary disease
     Dosage: 160/9/4.8MCG, 2 PUFFS TWICE A DAY
     Route: 055
     Dates: start: 2020

REACTIONS (7)
  - Lumbar vertebral fracture [Unknown]
  - Visual impairment [Not Recovered/Not Resolved]
  - Cough [Unknown]
  - Osteoporosis [Unknown]
  - Wrong technique in device usage process [Unknown]
  - Intentional device misuse [Unknown]
  - Device delivery system issue [Unknown]

NARRATIVE: CASE EVENT DATE: 20200101
